FAERS Safety Report 7246154-3 (Version None)
Quarter: 2011Q1

REPORT INFORMATION
  Report Type: 
  Country: None (occurrence: None)
  Receive Date: 20110126
  Receipt Date: 20110119
  Transmission Date: 20110831
  Serious: Yes (Other)
  Sender: FDA-Public Use
  Company Number: A0908779A

PATIENT
  Age: 26 Year
  Sex: Male

DRUGS (1)
  1. PAXIL [Suspect]
     Indication: PRODUCT USED FOR UNKNOWN INDICATION
     Route: 048

REACTIONS (7)
  - LIBIDO INCREASED [None]
  - FOOD CRAVING [None]
  - ALCOHOLISM [None]
  - WITHDRAWAL SYNDROME [None]
  - AGGRESSION [None]
  - DRUG DEPENDENCE [None]
  - PARAESTHESIA [None]
